FAERS Safety Report 18265043 (Version 2)
Quarter: 2020Q4

REPORT INFORMATION
  Report Type: Report from Study
  Country: FR (occurrence: FR)
  Receive Date: 20200914
  Receipt Date: 20201102
  Transmission Date: 20210113
  Serious: Yes (Other)
  Sender: FDA-Public Use
  Company Number: FR-CELGENEUS-FRA-20200901626

PATIENT
  Age: 51 Year
  Sex: Female

DRUGS (2)
  1. IDHIFA [Suspect]
     Active Substance: ENASIDENIB MESYLATE
     Indication: ACUTE MYELOID LEUKAEMIA
     Route: 048
     Dates: start: 20200723, end: 20200822
  2. IDHIFA [Suspect]
     Active Substance: ENASIDENIB MESYLATE
     Route: 048
     Dates: start: 20200901, end: 20200923

REACTIONS (6)
  - General physical health deterioration [Unknown]
  - Blast cell count increased [Unknown]
  - Eastern Cooperative Oncology Group performance status worsened [Unknown]
  - Acute myeloid leukaemia [Unknown]
  - Haemoglobin abnormal [Unknown]
  - Differentiation syndrome [Unknown]

NARRATIVE: CASE EVENT DATE: 2020
